FAERS Safety Report 8318639-X (Version None)
Quarter: 2012Q2

REPORT INFORMATION
  Report Type: 
  Country: None (occurrence: None)
  Receive Date: 20120427
  Receipt Date: 20090812
  Transmission Date: 20120825
  Serious: No
  Sender: FDA-Public Use
  Company Number: US-TEVA-2009009591

PATIENT
  Sex: Male

DRUGS (2)
  1. NORVASC [Concomitant]
  2. NUVIGIL [Suspect]
     Route: 048
     Dates: start: 20090101, end: 20090101

REACTIONS (1)
  - OEDEMA PERIPHERAL [None]
